FAERS Safety Report 7201894-7 (Version None)
Quarter: 2010Q4

REPORT INFORMATION
  Report Type: 
  Country: None (occurrence: None)
  Receive Date: 20101215
  Receipt Date: 20100924
  Transmission Date: 20110411
  Serious: Yes (Other)
  Sender: FDA-Public Use
  Company Number: JPI-P-003034

PATIENT
  Age: 41 Year
  Sex: Female
  Weight: 65.7716 kg

DRUGS (29)
  1. XYREM [Suspect]
     Indication: FATIGUE
     Dosage: SEE IMAGE
     Route: 048
     Dates: start: 20041209
  2. XYREM [Suspect]
     Indication: PAIN
     Dosage: SEE IMAGE
     Route: 048
     Dates: start: 20041209
  3. XYREM [Suspect]
     Indication: SLEEP DISORDER
     Dosage: SEE IMAGE
     Route: 048
     Dates: start: 20041209
  4. XYREM [Suspect]
     Indication: SOMNOLENCE
     Dosage: SEE IMAGE
     Route: 048
     Dates: start: 20041209
  5. XYREM [Suspect]
     Indication: FATIGUE
     Dosage: SEE IMAGE
     Route: 048
     Dates: start: 20090301
  6. XYREM [Suspect]
     Indication: PAIN
     Dosage: SEE IMAGE
     Route: 048
     Dates: start: 20090301
  7. XYREM [Suspect]
     Indication: SLEEP DISORDER
     Dosage: SEE IMAGE
     Route: 048
     Dates: start: 20090301
  8. XYREM [Suspect]
     Indication: SOMNOLENCE
     Dosage: SEE IMAGE
     Route: 048
     Dates: start: 20090301
  9. MORPHINE [Concomitant]
  10. OXYBUTIN [Concomitant]
  11. HYDROCORTISONE [Concomitant]
  12. FLUDROCORTISONE [Concomitant]
  13. THYROID [Concomitant]
  14. MOMETASONE FUROATE [Concomitant]
  15. GABAPENTIN [Concomitant]
  16. PROCHLORPERAZINE [Concomitant]
  17. IMIPRAMINE PAMOATE [Concomitant]
  18. CLONAZEPAM [Concomitant]
  19. ROPINIROLE HYDROCHLORIDE [Concomitant]
  20. RAMELTEON [Concomitant]
  21. HORMONE BIO-IDENTICAL CREAM [Concomitant]
  22. TROSPIUM [Concomitant]
  23. FLUCONAZOLE [Concomitant]
  24. MODAFINIL [Concomitant]
  25. ATENOLOL [Concomitant]
  26. CYANOCOBALAMIN [Concomitant]
  27. SPIRONOLACTONE [Concomitant]
  28. PREGNENOLONE [Concomitant]
  29. PROGESTERONE/TESTOSTERONE [Concomitant]

REACTIONS (10)
  - CYSTOCELE [None]
  - FATIGUE [None]
  - HYPOSOMNIA [None]
  - INITIAL INSOMNIA [None]
  - MUSCLE SPASMS [None]
  - POLLAKIURIA [None]
  - RECTOCELE [None]
  - SINUSITIS [None]
  - SINUSITIS FUNGAL [None]
  - SOMNOLENCE [None]
